FAERS Safety Report 7540598-8 (Version None)
Quarter: 2011Q2

REPORT INFORMATION
  Report Type: 
  Country: None (occurrence: None)
  Receive Date: 20110610
  Receipt Date: 20110606
  Transmission Date: 20111010
  Serious: Yes (Other)
  Sender: FDA-Public Use
  Company Number: US-PFIZER INC-2011098937

PATIENT
  Sex: Male

DRUGS (4)
  1. ACTOS [Concomitant]
  2. GLYBURIDE [Concomitant]
  3. SUTENT [Suspect]
     Dosage: 50 MG ALTERNATING WITH 25 MG DAILY, X 4 WEEKS
     Dates: start: 20110314, end: 20110501
  4. SUTENT [Suspect]
     Dosage: 50 MG, 1X/DAY, FOR 28 DAYS Q 42
     Dates: start: 20110425

REACTIONS (4)
  - HAEMORRHOIDAL HAEMORRHAGE [None]
  - WEIGHT DECREASED [None]
  - RENAL CANCER [None]
  - NEOPLASM MALIGNANT [None]
